FAERS Safety Report 4948771-X (Version None)
Quarter: 2006Q1

REPORT INFORMATION
  Report Type: 
  Country: None (occurrence: None)
  Receive Date: 20060321
  Receipt Date: 20011113
  Transmission Date: 20060701
  Serious: Yes (Hospitalization, Other)
  Sender: FDA-Public Use
  Company Number: PHEH2001US09305

PATIENT
  Age: 51 Year
  Sex: Female

DRUGS (4)
  1. LAMISIL [Suspect]
     Indication: NAIL TINEA
     Dosage: 250 MG, QD
     Route: 048
     Dates: start: 20010816, end: 20011023
  2. SYNTHROID [Concomitant]
  3. TOPROL-XL [Concomitant]
  4. KLONOPIN [Concomitant]

REACTIONS (12)
  - AGEUSIA [None]
  - ANXIETY [None]
  - ASTHENIA [None]
  - DECREASED APPETITE [None]
  - DEPRESSION [None]
  - DYSGEUSIA [None]
  - GENERAL PHYSICAL HEALTH DETERIORATION [None]
  - INGROWING NAIL [None]
  - NAIL OPERATION [None]
  - OEDEMA [None]
  - ORAL DISCOMFORT [None]
  - WEIGHT DECREASED [None]
